FAERS Safety Report 15237127 (Version 1)
Quarter: 2018Q3

REPORT INFORMATION
  Report Type: Spontaneous
  Country: US (occurrence: US)
  Receive Date: 20180710
  Receipt Date: 20180710
  Transmission Date: 20181010
  Serious: Yes (Disabling)
  Sender: FDA-Public Use
  Company Number: None

PATIENT
  Age: 61 Year
  Sex: Male
  Weight: 162 kg

DRUGS (8)
  1. FLUOCINOLONE [Concomitant]
     Active Substance: FLUOCINOLONE
  2. LISINOPRIL. [Concomitant]
     Active Substance: LISINOPRIL
  3. HUMALOG [Concomitant]
     Active Substance: INSULIN LISPRO
  4. LANTUS [Concomitant]
     Active Substance: INSULIN GLARGINE
  5. DULOXETINE. [Concomitant]
     Active Substance: DULOXETINE
  6. TRICOR [Suspect]
     Active Substance: FENOFIBRATE
     Indication: BLOOD CHOLESTEROL INCREASED
     Dosage: ?          QUANTITY:1 TABLET(S);?
     Route: 048
     Dates: start: 20180519, end: 20180521
  7. OXYCODONE [Concomitant]
     Active Substance: OXYCODONE
  8. METFORMIN [Concomitant]
     Active Substance: METFORMIN HYDROCHLORIDE

REACTIONS (3)
  - Rash macular [None]
  - Skin discolouration [None]
  - Economic problem [None]

NARRATIVE: CASE EVENT DATE: 20180520
